FAERS Safety Report 15682164 (Version 1)
Quarter: 2018Q4

REPORT INFORMATION
  Report Type: Spontaneous
  Country: US (occurrence: US)
  Receive Date: 20181203
  Receipt Date: 20181203
  Transmission Date: 20190205
  Serious: Yes (Other)
  Sender: FDA-Public Use
  Company Number: US-IMPAX LABORATORIES, LLC-2018-IPXL-04025

PATIENT
  Age: 42 Year
  Sex: Female

DRUGS (3)
  1. STROMECTOL [Suspect]
     Active Substance: IVERMECTIN
     Indication: FILARIASIS LYMPHATIC
     Dosage: 200 MICROGRAM/KILOGRAM
     Route: 065
  2. ALBENZA [Suspect]
     Active Substance: ALBENDAZOLE
     Indication: FILARIASIS LYMPHATIC
     Dosage: 400 MILLIGRAM
     Route: 065
  3. DIETHYLCARBAMAZINE [Suspect]
     Active Substance: DIETHYLCARBAMAZINE
     Indication: FILARIASIS LYMPHATIC
     Dosage: 6 MILLIGRAM/KILOGRAM
     Route: 065

REACTIONS (6)
  - Nausea [Recovered/Resolved]
  - Orthostatic hypotension [Recovered/Resolved]
  - Headache [Recovered/Resolved]
  - Chills [Recovered/Resolved]
  - Body temperature increased [Recovered/Resolved]
  - Tachycardia [Recovered/Resolved]
